FAERS Safety Report 9058777 (Version 2)
Quarter: 2013Q1

REPORT INFORMATION
  Report Type: Spontaneous
  Country: FR (occurrence: FR)
  Receive Date: 20130204
  Receipt Date: 20130219
  Transmission Date: 20140127
  Serious: Yes (Other)
  Sender: FDA-Public Use
  Company Number: PHHY2013FR009790

PATIENT
  Sex: Female

DRUGS (1)
  1. GILENYA [Suspect]
     Route: 048

REACTIONS (4)
  - Generalised oedema [Unknown]
  - Macular oedema [Recovered/Resolved]
  - Hypertension [Unknown]
  - Visual acuity reduced [Unknown]
